FAERS Safety Report 9779206 (Version 2)
Quarter: 2013Q4

REPORT INFORMATION
  Report Type: Spontaneous
  Country: IE (occurrence: IE)
  Receive Date: 20131223
  Receipt Date: 20131223
  Transmission Date: 20140711
  Serious: Yes (Other)
  Sender: FDA-Public Use
  Company Number: PHFR2013IE006432

PATIENT
  Age: 44 Year
  Sex: Female

DRUGS (6)
  1. CLOZARIL [Suspect]
     Indication: SCHIZOPHRENIA
     Dosage: UNK
     Route: 048
     Dates: start: 20060714
  2. CLOZARIL [Suspect]
     Dosage: 350 MG, UNK
     Route: 048
  3. OLANZAPINE [Concomitant]
     Dosage: UNK
  4. VENLAFAXINE [Concomitant]
     Dosage: UNK
  5. VALPROATE [Concomitant]
     Dosage: UNK
  6. LOFEPRAMINE [Concomitant]
     Dosage: UNK

REACTIONS (3)
  - Type 1 diabetes mellitus [Not Recovered/Not Resolved]
  - Menorrhagia [Not Recovered/Not Resolved]
  - Platelet count decreased [Recovered/Resolved]
